FAERS Safety Report 7886347 (Version 8)
Quarter: 2013Q2

REPORT INFORMATION
  Report Type: Report from Study
  Country: KR (occurrence: KR)
  Receive Date: 20110405
  Receipt Date: 20130416
  Transmission Date: 20140414
  Serious: Yes (Death, Other)
  Sender: FDA-Public Use
  Company Number: KR-BAYER-2011-028638

PATIENT
  Age: 76 Year
  Sex: Female
  Weight: 48.98 kg

DRUGS (3)
  1. GADOBUTROL [Suspect]
     Indication: MEMORY IMPAIRMENT
     Dosage: 7.5 ML, ONCE
     Route: 042
     Dates: start: 20110401, end: 20110401
  2. GADOBUTROL [Suspect]
     Indication: NUCLEAR MAGNETIC RESONANCE IMAGING BRAIN
  3. GADOBUTROL [Suspect]
     Indication: ARTERIOGRAM CAROTID

REACTIONS (14)
  - Anaphylactic shock [Fatal]
  - Pulmonary oedema [Fatal]
  - Dizziness [Fatal]
  - Cyanosis [Fatal]
  - Muscular weakness [Fatal]
  - Cold sweat [Fatal]
  - Dyspnoea [Fatal]
  - Somnolence [Fatal]
  - Blood pressure decreased [Fatal]
  - Pulse absent [Fatal]
  - Cardiac arrest [Fatal]
  - Pleural effusion [Fatal]
  - Hypotension [Fatal]
  - Respiratory distress [Fatal]
